FAERS Safety Report 10950681 (Version 1)
Quarter: 2015Q1

REPORT INFORMATION
  Report Type: Spontaneous
  Country: JP (occurrence: JP)
  Receive Date: 20150324
  Receipt Date: 20150324
  Transmission Date: 20150721
  Serious: Yes (Hospitalization)
  Sender: FDA-Public Use
  Company Number: JP-PFIZER INC-2015089550

PATIENT
  Age: 65 Year
  Sex: Female

DRUGS (1)
  1. SUTENT [Suspect]
     Active Substance: SUNITINIB MALATE
     Indication: RENAL CELL CARCINOMA
     Dosage: UNK
     Dates: start: 20110709, end: 20110829

REACTIONS (6)
  - Fall [Unknown]
  - Renal cell carcinoma [Unknown]
  - Disease progression [Unknown]
  - Dizziness [Unknown]
  - Condition aggravated [Unknown]
  - Muscular weakness [Unknown]
